FAERS Safety Report 17242985 (Version 1)
Quarter: 2020Q1

REPORT INFORMATION
  Report Type: Spontaneous
  Country: DE (occurrence: DE)
  Receive Date: 20200107
  Receipt Date: 20200107
  Transmission Date: 20200409
  Serious: Yes (Death, Hospitalization, Congenital Anomaly)
  Sender: FDA-Public Use
  Company Number: DE-SAMSUNG BIOEPIS-SB-2019-40156

PATIENT
  Age: 0 Year

DRUGS (1)
  1. FLIXABI [Suspect]
     Active Substance: INFLIXIMAB
     Indication: COLITIS ULCERATIVE
     Dosage: 350
     Route: 064
     Dates: start: 201811

REACTIONS (6)
  - Hydrops foetalis [Fatal]
  - Heart disease congenital [Fatal]
  - Pleural effusion [Fatal]
  - Foetal malformation [Fatal]
  - Pericardial effusion [Fatal]
  - Hygroma colli [Fatal]

NARRATIVE: CASE EVENT DATE: 2019
